FAERS Safety Report 8282129-3 (Version None)
Quarter: 2012Q2

REPORT INFORMATION
  Report Type: 
  Country: None (occurrence: None)
  Receive Date: 20120413
  Receipt Date: 20120410
  Transmission Date: 20120825
  Serious: Yes (Life-Threatening, Hospitalization)
  Sender: FDA-Public Use
  Company Number: ES-B.I. PHARMACEUTICALS,INC./RIDGEFIELD-2011-ES-00077ES

PATIENT
  Age: 40 Year
  Sex: Female

DRUGS (6)
  1. VIRAMUNE [Suspect]
     Indication: HIV INFECTION
     Route: 048
     Dates: start: 20100601, end: 20100729
  2. ATARAX [Concomitant]
     Route: 048
     Dates: end: 20100729
  3. TRUVADA [Suspect]
     Indication: HIV INFECTION
     Route: 048
     Dates: start: 20090201, end: 20100729
  4. TEMAZEPAM [Concomitant]
     Route: 048
     Dates: start: 20100728, end: 20100729
  5. ZOLPIDEM TARTRATE [Concomitant]
     Route: 048
     Dates: end: 20100729
  6. ALPRAZOLAM [Concomitant]
     Route: 048
     Dates: end: 20100729

REACTIONS (10)
  - HEPATIC ENCEPHALOPATHY [None]
  - COAGULOPATHY [None]
  - OLIGURIA [None]
  - NAUSEA [None]
  - DECREASED APPETITE [None]
  - ACUTE HEPATIC FAILURE [None]
  - PYREXIA [None]
  - JAUNDICE [None]
  - VOMITING [None]
  - HYPOGLYCAEMIA [None]
